FAERS Safety Report 19916551 (Version 1)
Quarter: 2021Q4

REPORT INFORMATION
  Report Type: Spontaneous
  Country: US (occurrence: US)
  Receive Date: 20211004
  Receipt Date: 20211004
  Transmission Date: 20220303
  Serious: No
  Sender: FDA-Public Use
  Company Number: None

PATIENT
  Age: 85 Year
  Sex: Male

DRUGS (5)
  1. LOTRIMIN ANTIFUNGAL (MICONAZOLE NITRATE) [Suspect]
     Active Substance: MICONAZOLE NITRATE
     Route: 061
  2. XARELTO [Concomitant]
     Active Substance: RIVAROXABAN
  3. DIGOXIN [Concomitant]
     Active Substance: DIGOXIN
  4. OMENPARAZOLE [Concomitant]
  5. PRROBIOTIC [Concomitant]

REACTIONS (2)
  - Genital burning sensation [None]
  - Pain [None]

NARRATIVE: CASE EVENT DATE: 20210820
